APPROVED DRUG PRODUCT: METHOCARBAMOL
Active Ingredient: METHOCARBAMOL
Strength: 500MG
Dosage Form/Route: TABLET;ORAL
Application: A212623 | Product #001 | TE Code: AA
Applicant: POINTVIEW HOLDINGS LLC
Approved: Apr 30, 2021 | RLD: No | RS: No | Type: RX